FAERS Safety Report 15772255 (Version 2)
Quarter: 2019Q2

REPORT INFORMATION
  Report Type: Spontaneous
  Country: JP (occurrence: JP)
  Receive Date: 20181228
  Receipt Date: 20190405
  Transmission Date: 20190711
  Serious: Yes (Other)
  Sender: FDA-Public Use
  Company Number: JP-ASTRAZENECA-2018SF69740

PATIENT
  Age: 61 Year
  Sex: Female

DRUGS (8)
  1. IRESSA [Suspect]
     Active Substance: GEFITINIB
     Indication: LUNG ADENOCARCINOMA
     Route: 048
  2. TAGRISSO [Suspect]
     Active Substance: OSIMERTINIB
     Indication: LUNG ADENOCARCINOMA
     Route: 048
  3. ERLOTINIB [Concomitant]
     Active Substance: ERLOTINIB
  4. CARBOPLATIN. [Concomitant]
     Active Substance: CARBOPLATIN
  5. AFATINIB [Concomitant]
     Active Substance: AFATINIB
  6. PEMETREXED. [Concomitant]
     Active Substance: PEMETREXED
  7. BEVACIZUMAB. [Concomitant]
     Active Substance: BEVACIZUMAB
  8. TAGRISSO [Suspect]
     Active Substance: OSIMERTINIB
     Indication: LUNG ADENOCARCINOMA
     Route: 048

REACTIONS (6)
  - Malignant transformation [Unknown]
  - Malignant neoplasm progression [Unknown]
  - Drug resistance [Unknown]
  - Alanine aminotransferase increased [Unknown]
  - Aspartate aminotransferase increased [Unknown]
  - Small cell lung cancer [Unknown]
